FAERS Safety Report 25975228 (Version 2)
Quarter: 2025Q4

REPORT INFORMATION
  Report Type: Spontaneous
  Country: US (occurrence: None)
  Receive Date: 20251029
  Receipt Date: 20251215
  Transmission Date: 20260118
  Serious: No
  Sender: UCB
  Company Number: US-UCBSA-2025050445

PATIENT
  Age: 38 Year

DRUGS (1)
  1. BIMZELX [Suspect]
     Active Substance: BIMEKIZUMAB-BKZX
     Indication: Psoriasis
     Dosage: 320 MILLIGRAM, EV 4 WEEKS

REACTIONS (6)
  - Oral candidiasis [Recovered/Resolved]
  - Lip dry [Unknown]
  - Fatigue [Unknown]
  - Injection site pain [Unknown]
  - Oral mucosal blistering [Recovered/Resolved]
  - Mouth ulceration [Recovered/Resolved]
